FAERS Safety Report 9175872 (Version 2)
Quarter: 2013Q1

REPORT INFORMATION
  Report Type: Spontaneous
  Country: US (occurrence: US)
  Receive Date: 20130320
  Receipt Date: 20130329
  Transmission Date: 20140127
  Serious: Yes (Hospitalization, Other)
  Sender: FDA-Public Use
  Company Number: US-BAXTER-2013BAX009641

PATIENT
  Age: 76 Year
  Sex: Male

DRUGS (1)
  1. DIANEAL LOW CALCIUM [Suspect]
     Indication: PERITONEAL DIALYSIS
     Route: 033

REACTIONS (5)
  - Renal disorder [Recovered/Resolved]
  - Urinary tract obstruction [Recovered/Resolved]
  - Hydronephrosis [Recovered/Resolved]
  - Nephrolithiasis [Recovering/Resolving]
  - Bronchitis [Recovering/Resolving]
